FAERS Safety Report 7564960-2 (Version None)
Quarter: 2011Q2

REPORT INFORMATION
  Report Type: 
  Country: None (occurrence: None)
  Receive Date: 20110622
  Receipt Date: 20110303
  Transmission Date: 20111010
  Serious: Yes (Death, Other)
  Sender: FDA-Public Use
  Company Number: US-MYLANLABS-2011S1004430

PATIENT
  Age: 69 Year
  Sex: Male

DRUGS (9)
  1. LORAZEPAM [Concomitant]
     Dosage: 2 MG/ML
  2. MIRTAZAPINE [Concomitant]
  3. METFORMIN HCL [Concomitant]
  4. FENTANYL [Concomitant]
  5. CLOZAPINE [Suspect]
  6. AMLODIPINE [Concomitant]
  7. SIMVASTATIN [Concomitant]
  8. BENZTROPINE MESYLATE [Concomitant]
  9. COLACE [Concomitant]

REACTIONS (1)
  - DEATH [None]
